FAERS Safety Report 4273662-X (Version None)
Quarter: 2004Q1

REPORT INFORMATION
  Report Type: 
  Country: None (occurrence: None)
  Receive Date: 20040116
  Receipt Date: 20040116
  Transmission Date: 20041129
  Serious: Yes (Other)
  Sender: FDA-Public Use
  Company Number: None

PATIENT
  Age: 43 Year
  Sex: Female
  Weight: 62.1428 kg

DRUGS (1)
  1. ZEMAIRA [Suspect]
     Indication: ALPHA-1 ANTI-TRYPSIN DEFICIENCY
     Dosage: 95MG/KG WEEKLY INTRAVENOUS
     Route: 042
     Dates: start: 20031017, end: 20040115

REACTIONS (5)
  - BODY TEMPERATURE INCREASED [None]
  - DECREASED ACTIVITY [None]
  - FEELING ABNORMAL [None]
  - HEADACHE [None]
  - PAIN [None]
